FAERS Safety Report 7488230-6 (Version None)
Quarter: 2011Q2

REPORT INFORMATION
  Report Type: 
  Country: None (occurrence: None)
  Receive Date: 20110511
  Receipt Date: 20110426
  Transmission Date: 20111010
  Serious: Yes (Disabling)
  Sender: FDA-Public Use
  Company Number: 028020

PATIENT
  Sex: Male
  Weight: 78 kg

DRUGS (6)
  1. VIMPAT [Suspect]
     Indication: EPILEPSY
     Dosage: SEE IMAGE
     Route: 048
     Dates: start: 20110101
  2. VIMPAT [Suspect]
     Indication: EPILEPSY
     Dosage: SEE IMAGE
     Route: 048
     Dates: start: 20110209, end: 20110101
  3. VIMPAT [Suspect]
     Indication: EPILEPSY
     Dosage: SEE IMAGE
     Route: 048
     Dates: start: 20110101, end: 20110101
  4. LAMOTRIGINE [Concomitant]
  5. FRISIUM [Concomitant]
  6. ORFIRIL /00228502/ [Concomitant]

REACTIONS (5)
  - VISION BLURRED [None]
  - NYSTAGMUS [None]
  - OFF LABEL USE [None]
  - MYDRIASIS [None]
  - VISUAL ACUITY REDUCED [None]
